FAERS Safety Report 6796100-1 (Version None)
Quarter: 2010Q2

REPORT INFORMATION
  Report Type: 
  Country: None (occurrence: None)
  Receive Date: 20100625
  Receipt Date: 20100618
  Transmission Date: 20101027
  Serious: Yes (Hospitalization, Disabling)
  Sender: FDA-Public Use
  Company Number: FR-AMGEN-QUU414308

PATIENT
  Sex: Female

DRUGS (7)
  1. VECTIBIX [Suspect]
     Indication: COLORECTAL CANCER
     Route: 042
     Dates: start: 20091023, end: 20100318
  2. XELODA [Concomitant]
  3. FOLINIC ACID [Concomitant]
  4. CAMPTOSAR [Concomitant]
  5. ERBITUX [Concomitant]
  6. FLUOROURACIL [Concomitant]
  7. OXALIPLATIN [Concomitant]

REACTIONS (8)
  - AMNIOTIC MEMBRANE GRAFT [None]
  - BLEPHARITIS [None]
  - CONJUNCTIVITIS [None]
  - ECTROPION [None]
  - OCULAR TOXICITY [None]
  - OPHTHALMOLOGICAL EXAMINATION ABNORMAL [None]
  - TRANSPLANT FAILURE [None]
  - ULCERATIVE KERATITIS [None]
